FAERS Safety Report 8599140 (Version 2)
Quarter: 2012Q4

REPORT INFORMATION
  Report Type: 
  Country: US (occurrence: US)
  Receive Date: 20120605
  Receipt Date: 20121108
  Transmission Date: 20130627
  Serious: Yes (Other)
  Sender: FDA-Public Use
  Company Number: US-AMGEN-USASP2012034162

PATIENT
  Age: 55 Year
  Sex: Male
  Weight: 93.42 kg

DRUGS (2)
  1. ENBREL [Suspect]
     Indication: ANKYLOSING SPONDYLITIS
     Dosage: 50 mg, qwk
     Route: 058
     Dates: start: 200612
  2. ADVIL /00109201/ [Concomitant]
     Dosage: UNK

REACTIONS (1)
  - Prostate cancer [Recovering/Resolving]
